FAERS Safety Report 19291872 (Version 2)
Quarter: 2021Q2

REPORT INFORMATION
  Report Type: Report from Study
  Country: None (occurrence: US)
  Receive Date: 20210524
  Receipt Date: 20210615
  Transmission Date: 20210717
  Serious: Yes (Hospitalization, Other)
  Sender: FDA-Public Use
  Company Number: US-ABBVIE-21K-163-3905813-00

PATIENT
  Age: 56 Year
  Sex: Male
  Weight: 88.53 kg

DRUGS (3)
  1. HUMIRA [Suspect]
     Active Substance: ADALIMUMAB
     Indication: COLITIS ULCERATIVE
     Dosage: CF
     Route: 058
     Dates: start: 201809, end: 20210218
  2. HUMIRA [Suspect]
     Active Substance: ADALIMUMAB
     Route: 058
     Dates: start: 20210311
  3. LOSARTAN. [Concomitant]
     Active Substance: LOSARTAN
     Indication: HYPERTENSION

REACTIONS (3)
  - Hernia [Recovered/Resolved]
  - Postoperative wound infection [Recovered/Resolved]
  - Hernia [Recovered/Resolved]

NARRATIVE: CASE EVENT DATE: 202102
